FAERS Safety Report 4582128-9 (Version None)
Quarter: 2005Q1

REPORT INFORMATION
  Report Type: 
  Country: None (occurrence: None)
  Receive Date: 20050119
  Receipt Date: 20040309
  Transmission Date: 20050727
  Serious: Yes (Hospitalization)
  Sender: FDA-Public Use
  Company Number: A03200400728

PATIENT
  Age: 78 Year
  Sex: Female
  Weight: 61.2356 kg

DRUGS (6)
  1. PLAVIX [Suspect]
     Indication: TRANSIENT ISCHAEMIC ATTACK
     Dosage: 75 MG QD - ORAL
     Route: 048
     Dates: start: 20010701, end: 20020701
  2. ACETYLSALICYLIC ACID [Concomitant]
  3. ATENOLOL [Concomitant]
  4. NIFEDIPINE [Concomitant]
  5. PREDNISONE [Concomitant]
  6. METHOTREXATE [Concomitant]

REACTIONS (1)
  - EPISTAXIS [None]
